FAERS Safety Report 5235483-0 (Version None)
Quarter: 2007Q1

REPORT INFORMATION
  Report Type: 
  Country: None (occurrence: None)
  Receive Date: 20070208
  Receipt Date: 20070208
  Transmission Date: 20070707
  Serious: No
  Sender: FDA-Public Use
  Company Number: None

PATIENT
  Age: 38 Year
  Sex: Female
  Weight: 68.0396 kg

DRUGS (1)
  1. ALEVE COLD AND SINUS [Suspect]
     Indication: NASOPHARYNGITIS
     Dosage: 1  12 HR RELEASE PILL  2 TIMES A DAY  PO
     Route: 048
     Dates: start: 20070206, end: 20070207

REACTIONS (2)
  - INSOMNIA [None]
  - NERVOUSNESS [None]
